FAERS Safety Report 6983521-7 (Version None)
Quarter: 2010Q3

REPORT INFORMATION
  Report Type: 
  Country: None (occurrence: None)
  Receive Date: 20100914
  Receipt Date: 20080814
  Transmission Date: 20110219
  Serious: No
  Sender: FDA-Public Use
  Company Number: US-WYE-H05612508

PATIENT
  Age: 82 Year
  Sex: Female
  Weight: 65.83 kg

DRUGS (2)
  1. ADVIL LIQUI-GELS [Suspect]
     Indication: PAIN
     Dosage: 1 CAPSULE X 1
     Route: 048
     Dates: start: 20080812, end: 20080812
  2. ESOMEPRAZOLE MAGNESIUM [Concomitant]

REACTIONS (1)
  - DYSPHAGIA [None]
